FAERS Safety Report 8107137-4 (Version None)
Quarter: 2012Q1

REPORT INFORMATION
  Report Type: 
  Country: None (occurrence: None)
  Receive Date: 20120202
  Receipt Date: 20120131
  Transmission Date: 20120608
  Serious: Yes (Hospitalization)
  Sender: FDA-Public Use
  Company Number: US-B.I. PHARMACEUTICALS,INC./RIDGEFIELD-2012-BP-01908BP

PATIENT
  Sex: Male

DRUGS (9)
  1. KLONOPIN [Concomitant]
     Indication: ANXIETY
  2. CALCIUM [Concomitant]
     Indication: SUPPLEMENTATION THERAPY
     Route: 048
  3. LABETALOL HCL [Concomitant]
     Indication: HYPERTENSION
     Route: 048
  4. ENALAPRIL MALEATE [Concomitant]
     Indication: HYPERTENSION
     Route: 048
  5. KLONOPIN [Concomitant]
     Indication: STRESS
     Route: 048
  6. VITAMIN B COMPLEX CAP [Concomitant]
     Indication: SUPPLEMENTATION THERAPY
     Route: 048
  7. PRADAXA [Suspect]
     Indication: ATRIAL FIBRILLATION
     Dosage: 300 MG
     Route: 048
     Dates: start: 20110801
  8. OXYCODONE HCL [Concomitant]
     Indication: ARTHRALGIA
     Route: 048
  9. LASIX [Concomitant]
     Route: 048

REACTIONS (2)
  - SYNCOPE [None]
  - WEIGHT DECREASED [None]
